FAERS Safety Report 18803028 (Version 1)
Quarter: 2021Q1

REPORT INFORMATION
  Report Type: Spontaneous
  Country: DE (occurrence: DE)
  Receive Date: 20210129
  Receipt Date: 20210129
  Transmission Date: 20210419
  Serious: Yes (Disabling)
  Sender: FDA-Public Use
  Company Number: DE-AUROBINDO-AUR-APL-2021-003049

PATIENT
  Age: 43 Year
  Sex: Male

DRUGS (1)
  1. CITALOPRAM [Suspect]
     Active Substance: CITALOPRAM HYDROBROMIDE
     Indication: INSOMNIA
     Dosage: 20 MILLIGRAM, ONCE A DAY
     Route: 065
     Dates: start: 20140728

REACTIONS (2)
  - Insomnia [Unknown]
  - Accident [Recovered/Resolved with Sequelae]

NARRATIVE: CASE EVENT DATE: 20140729
